FAERS Safety Report 8341754-1 (Version None)
Quarter: 2012Q2

REPORT INFORMATION
  Report Type: 
  Country: None (occurrence: None)
  Receive Date: 20120503
  Receipt Date: 20120420
  Transmission Date: 20120825
  Serious: Yes (Other)
  Sender: FDA-Public Use
  Company Number: JPI-P-019969

PATIENT
  Age: 78 Year
  Sex: Female

DRUGS (6)
  1. WARFARIN SODIUM [Concomitant]
  2. HYDROXYZINE [Concomitant]
  3. XYREM [Suspect]
     Indication: CATAPLEXY
     Dosage: 7.5 GM (3.75 GM,2 IN 1 D),ORAL
     Route: 048
     Dates: start: 20020927
  4. BUMETANIDE [Concomitant]
  5. LOSARTAN POTASSIUM [Concomitant]
  6. MODAFINIL [Concomitant]

REACTIONS (1)
  - URINARY INCONTINENCE [None]
